FAERS Safety Report 9554071 (Version 1)
Quarter: 2013Q3

REPORT INFORMATION
  Report Type: Spontaneous
  Country: GB (occurrence: GB)
  Receive Date: 20130925
  Receipt Date: 20130925
  Transmission Date: 20140515
  Serious: Yes (Life-Threatening, Hospitalization, Other)
  Sender: FDA-Public Use
  Company Number: GB-TEVA-433201ISR

PATIENT
  Age: 95 Year
  Sex: Male

DRUGS (11)
  1. FUROSEMIDE [Suspect]
     Dosage: 40 MILLIGRAM DAILY; IN THE MORNING
     Route: 048
  2. AUGMENTIN [Suspect]
     Indication: INFECTIVE EXACERBATION OF CHRONIC OBSTRUCTIVE AIRWAYS DISEASE
     Dosage: 1125 MILLIGRAM DAILY;
     Route: 048
     Dates: start: 20121016, end: 20121019
  3. LANSOPRAZOLE [Concomitant]
     Dosage: 30 MILLIGRAM DAILY;
  4. CARBOCISTEINE [Concomitant]
     Dosage: 750 MILLIGRAM DAILY;
  5. STRONTIUM RANELATE [Concomitant]
     Dosage: 1 DOSAGE FORMS DAILY; AT NIGHT
  6. SIMVASTATIN [Concomitant]
     Dosage: 40 MILLIGRAM DAILY; AT NIGHT
  7. ASPIRIN [Concomitant]
     Dosage: 75 MILLIGRAM DAILY;
  8. LEVOTHYROXINE [Concomitant]
     Dosage: 75 MICROGRAM DAILY; IN THE MORNING
  9. DIAZEPAM [Concomitant]
     Dosage: 4 MILLIGRAM DAILY;
  10. ADCAL-D3 [Concomitant]
     Dosage: 2 DOSAGE FORMS DAILY;
  11. PREDNISOLONE [Concomitant]

REACTIONS (4)
  - Treatment failure [Recovered/Resolved]
  - Renal failure acute [Recovered/Resolved]
  - Confusional state [Unknown]
  - Dyspnoea [Unknown]
